FAERS Safety Report 8511774-2 (Version None)
Quarter: 2012Q3

REPORT INFORMATION
  Report Type: 
  Country: None (occurrence: None)
  Receive Date: 20120716
  Receipt Date: 20120706
  Transmission Date: 20120928
  Serious: Yes (Hospitalization)
  Sender: FDA-Public Use
  Company Number: PHHY2012FR057190

PATIENT
  Sex: Female
  Weight: 13.5 kg

DRUGS (1)
  1. ACZ885 [Suspect]
     Indication: HYPER IGD SYNDROME
     Dosage: 4 MG/KG (TOTAL OF 54 MG) EVERY 6 WEEKS
     Route: 058
     Dates: start: 20120113

REACTIONS (1)
  - PYREXIA [None]
